FAERS Safety Report 8282667 (Version 3)
Quarter: 2023Q4

REPORT INFORMATION
  Report Type: Spontaneous
  Country: GB (occurrence: GB)
  Receive Date: 20111209
  Receipt Date: 20231228
  Transmission Date: 20240110
  Serious: Yes (Hospitalization)
  Sender: FDA-Public Use
  Company Number: PHHO2011GB14121

PATIENT
  Age: 76 Year
  Sex: Male
  Weight: 89 kg

DRUGS (11)
  1. SACUBITRIL\VALSARTAN [Suspect]
     Active Substance: SACUBITRIL\VALSARTAN
     Indication: Cardiac failure chronic
     Dosage: 100 MG, BID
     Route: 065
     Dates: start: 20110803, end: 20110817
  2. ENALAPRIL [Suspect]
     Active Substance: ENALAPRIL
     Indication: Cardiac failure chronic
     Dosage: NO TREATMENT
     Route: 065
  3. ASPIRIN [Suspect]
     Active Substance: ASPIRIN
     Indication: Myocardial ischaemia
     Dosage: 75 MG, ONCE A DAY
     Route: 048
     Dates: start: 1993, end: 20110814
  4. CLOPIDOGREL [Suspect]
     Active Substance: CLOPIDOGREL BISULFATE
     Indication: Myocardial ischaemia
     Dosage: 75 MG, ONCE A DAY
     Route: 048
     Dates: start: 2008, end: 20110814
  5. ENALAPRIL [Suspect]
     Active Substance: ENALAPRIL
     Indication: Cardiac failure chronic
     Dosage: UNK
     Route: 065
  6. RAMIPRIL [Concomitant]
     Active Substance: RAMIPRIL
     Indication: Product used for unknown indication
     Dosage: 10 MG, ONCE A DAY
     Route: 048
     Dates: start: 2004, end: 20110818
  7. FUROSEMIDE [Concomitant]
     Active Substance: FUROSEMIDE
     Indication: Product used for unknown indication
     Dosage: 40 MG, ONCE A DAY
     Route: 048
     Dates: end: 20110818
  8. ISOSORBIDE MONONITRATE [Concomitant]
     Active Substance: ISOSORBIDE MONONITRATE
     Indication: Product used for unknown indication
     Dosage: 20 MG, ONCE A DAY
     Route: 048
     Dates: start: 1993
  9. NEBIVOLOL [Concomitant]
     Active Substance: NEBIVOLOL
     Indication: Product used for unknown indication
     Dosage: 10 MG, ONCE A DAY
     Route: 048
     Dates: start: 201004, end: 20110818
  10. DOXAZOSIN [Concomitant]
     Active Substance: DOXAZOSIN MESYLATE
     Indication: Product used for unknown indication
     Dosage: 2 MG, ONCE A DAY
     Route: 048
     Dates: end: 20110818
  11. SACUBITRIL\VALSARTAN [Suspect]
     Active Substance: SACUBITRIL\VALSARTAN

REACTIONS (2)
  - Epistaxis [Not Recovered/Not Resolved]
  - Dementia [Unknown]

NARRATIVE: CASE EVENT DATE: 20110814
